FAERS Safety Report 7953633-X (Version None)
Quarter: 2011Q4

REPORT INFORMATION
  Report Type: 
  Country: None (occurrence: None)
  Receive Date: 20111202
  Receipt Date: 20111125
  Transmission Date: 20120403
  Serious: Yes (Life-Threatening, Hospitalization, Other)
  Sender: FDA-Public Use
  Company Number: GB-ELI_LILLY_AND_COMPANY-GB201111007808

PATIENT
  Age: 58 Year
  Sex: Female
  Weight: 84 kg

DRUGS (15)
  1. EXENATIDE [Suspect]
     Dosage: UNK, UNKNOWN
     Route: 058
     Dates: start: 20110411, end: 20110818
  2. FUROSEMIDE [Concomitant]
  3. ALBUTEROL SULFATE AUTOHALER [Concomitant]
  4. BISOPROLOL FUMARATE [Concomitant]
  5. RAMIPRIL [Concomitant]
  6. WARFARIN SODIUM [Concomitant]
  7. CARBIMAZOLE [Concomitant]
  8. ZOPICLONE [Concomitant]
  9. CITALOPRAM [Concomitant]
  10. GLICLAZIDE [Concomitant]
  11. ASPIRIN [Concomitant]
  12. LANSOPRAZOLE [Concomitant]
  13. ACETAMINOPHEN [Concomitant]
  14. LOPERAMIDE HCL [Concomitant]
  15. SIMVASTATIN [Concomitant]

REACTIONS (5)
  - CEREBRAL INFARCTION [None]
  - MOBILITY DECREASED [None]
  - CARDIAC FAILURE [None]
  - DYSPNOEA [None]
  - BILIARY SEPSIS [None]
